FAERS Safety Report 16706228 (Version 5)
Quarter: 2019Q3

REPORT INFORMATION
  Report Type: Spontaneous
  Country: FR (occurrence: FR)
  Receive Date: 20190815
  Receipt Date: 20190904
  Transmission Date: 20191004
  Serious: Yes (Life-Threatening, Hospitalization, Other)
  Sender: FDA-Public Use
  Company Number: FR-BEH-2019105533

PATIENT
  Age: 56 Year
  Sex: Female

DRUGS (3)
  1. PRIVIGEN [Suspect]
     Active Substance: HUMAN IMMUNOGLOBULIN G
     Dosage: 10 GRAM, 30-JUL-2019 ALSO REPORTED
     Route: 041
     Dates: start: 20190731, end: 20190731
  2. PRIVIGEN [Suspect]
     Active Substance: HUMAN IMMUNOGLOBULIN G
     Indication: LUNG TRANSPLANT
     Dosage: 60 GRAM
     Route: 041
     Dates: start: 20190718, end: 20190718
  3. PRIVIGEN [Suspect]
     Active Substance: HUMAN IMMUNOGLOBULIN G
     Indication: DONOR SPECIFIC ANTIBODY PRESENT
     Dosage: 20 GRAM, 30-JUL-2019 ALSO REPORTED
     Route: 041
     Dates: start: 20190731, end: 20190731

REACTIONS (8)
  - Transfusion-related acute lung injury [Unknown]
  - Infection [Recovering/Resolving]
  - No adverse event [Unknown]
  - Product use in unapproved indication [Unknown]
  - Respiratory distress [Recovered/Resolved]
  - Pulmonary oedema [Recovered/Resolved]
  - Pulmonary oedema [Recovered/Resolved]
  - Respiratory distress [Recovered/Resolved]

NARRATIVE: CASE EVENT DATE: 20190718
